FAERS Safety Report 6674856-6 (Version None)
Quarter: 2010Q2

REPORT INFORMATION
  Report Type: 
  Country: None (occurrence: None)
  Receive Date: 20100409
  Receipt Date: 20100331
  Transmission Date: 20101027
  Serious: Yes (Disabling)
  Sender: FDA-Public Use
  Company Number: DE-JNJFOC-20100306158

PATIENT
  Sex: Male
  Weight: 28.3 kg

DRUGS (6)
  1. INTELENCE [Suspect]
     Indication: HIV INFECTION
     Route: 048
     Dates: start: 20081124
  2. PREZISTA [Suspect]
     Indication: HIV INFECTION
     Route: 048
     Dates: start: 20090326
  3. FUZEON [Suspect]
     Indication: HIV INFECTION
     Route: 050
     Dates: start: 20031113
  4. EPIVIR [Suspect]
     Indication: HIV INFECTION
     Route: 048
     Dates: start: 20030327
  5. ISENTRESS [Suspect]
     Indication: HIV INFECTION
     Route: 048
     Dates: start: 20081124
  6. NORVIR [Suspect]
     Indication: HIV INFECTION
     Route: 048
     Dates: start: 20021120

REACTIONS (3)
  - AUTOIMMUNE THYROIDITIS [None]
  - IMMUNE RECONSTITUTION SYNDROME [None]
  - OFF LABEL USE [None]
